FAERS Safety Report 8144805-2 (Version None)
Quarter: 2012Q1

REPORT INFORMATION
  Report Type: 
  Country: None (occurrence: None)
  Receive Date: 20120217
  Receipt Date: 20120213
  Transmission Date: 20120608
  Serious: Yes (Hospitalization, Other)
  Sender: FDA-Public Use
  Company Number: US-BAYER-201025483NA

PATIENT
  Age: 22 Year
  Sex: Female
  Weight: 95.238 kg

DRUGS (11)
  1. MUCINEX [Concomitant]
  2. PROVENTIL [Concomitant]
     Indication: UPPER RESPIRATORY TRACT INFECTION
  3. IBUPROFEN [Concomitant]
  4. YASMIN [Suspect]
     Indication: CONTRACEPTION
     Route: 048
     Dates: start: 20031001, end: 20050801
  5. DECONEX [Concomitant]
  6. LEVAQUIN [Concomitant]
     Indication: UPPER RESPIRATORY TRACT INFECTION
     Dosage: 500 MG, QD
  7. LISINOPRIL [Concomitant]
     Dosage: UNK
     Dates: start: 20080601, end: 20090601
  8. FUROSEMIDE [Concomitant]
     Dosage: UNK
     Dates: start: 20080828
  9. ALBUTEROL [Concomitant]
  10. YAZ [Suspect]
     Indication: CONTRACEPTION
     Route: 048
     Dates: start: 20050901, end: 20080501
  11. UNISOM [Concomitant]

REACTIONS (3)
  - CARDIAC FAILURE CONGESTIVE [None]
  - CARDIAC FAILURE ACUTE [None]
  - CARDIAC ARREST [None]
